FAERS Safety Report 5965070-8 (Version None)
Quarter: 2008Q4

REPORT INFORMATION
  Report Type: 
  Country: None (occurrence: None)
  Receive Date: 20081124
  Receipt Date: 20081124
  Transmission Date: 20090506
  Serious: Yes (Hospitalization, Other)
  Sender: FDA-Public Use
  Company Number: None

PATIENT
  Age: 40 Year
  Sex: Male
  Weight: 78.9259 kg

DRUGS (1)
  1. AVELOX [Suspect]
     Indication: PNEUMONIA
     Dosage: 1 TABLET ONE DAILY PO
     Route: 048
     Dates: start: 20081118, end: 20081120

REACTIONS (14)
  - ACTIVITIES OF DAILY LIVING IMPAIRED [None]
  - ANXIETY [None]
  - BLOOD PRESSURE IMMEASURABLE [None]
  - COLD SWEAT [None]
  - DRY SKIN [None]
  - EUPHORIC MOOD [None]
  - FATIGUE [None]
  - FEELING ABNORMAL [None]
  - FEELING JITTERY [None]
  - PALLOR [None]
  - RESTLESSNESS [None]
  - SENSATION OF BLOOD FLOW [None]
  - SYNCOPE [None]
  - TREMOR [None]
